FAERS Safety Report 10407455 (Version 1)
Quarter: 2014Q3

REPORT INFORMATION
  Report Type: Spontaneous
  Country: AU (occurrence: AU)
  Receive Date: 20140825
  Receipt Date: 20140825
  Transmission Date: 20150326
  Serious: Yes (Other)
  Sender: FDA-Public Use
  Company Number: PHHY2014AU103304

PATIENT
  Sex: Female

DRUGS (2)
  1. IMATINIB [Suspect]
     Active Substance: IMATINIB
     Indication: CHRONIC MYELOID LEUKAEMIA
     Dosage: UNK UKN, UNK
  2. INTERFERON NOS [Suspect]
     Active Substance: INTERFERON
     Dosage: 3 MU 3 TIMES WEEKLY FOR 6 WEEKS

REACTIONS (2)
  - Foetal death [Unknown]
  - Exposure during pregnancy [Unknown]
